FAERS Safety Report 21800783 (Version 1)
Quarter: 2022Q4

REPORT INFORMATION
  Report Type: Spontaneous
  Country: CZ (occurrence: None)
  Receive Date: 20221230
  Receipt Date: 20221230
  Transmission Date: 20230113
  Serious: Yes (Hospitalization, Other)
  Sender: FDA-Public Use
  Company Number: 2022A414215

PATIENT
  Age: 84 Year
  Sex: Female

DRUGS (11)
  1. DAPAGLIFLOZIN [Suspect]
     Active Substance: DAPAGLIFLOZIN
     Indication: Cardiac failure
     Route: 048
     Dates: start: 20221206, end: 20221212
  2. DAPAGLIFLOZIN [Suspect]
     Active Substance: DAPAGLIFLOZIN
     Indication: Type 2 diabetes mellitus
     Route: 048
     Dates: start: 20221206, end: 20221212
  3. RAMIPRIL [Concomitant]
     Active Substance: RAMIPRIL
     Route: 065
  4. BISOPROLOL FUMARATE [Concomitant]
     Active Substance: BISOPROLOL FUMARATE
     Dosage: 1/2 ONCE A DAY
     Route: 065
  5. METAMIZOLE [Concomitant]
     Active Substance: METAMIZOLE
     Route: 065
  6. ALLOPURINOL [Concomitant]
     Active Substance: ALLOPURINOL
     Route: 065
  7. TULIP [Concomitant]
     Route: 065
  8. PREGABALIN [Concomitant]
     Active Substance: PREGABALIN
     Route: 065
  9. SPIRONOLACTONE [Concomitant]
     Active Substance: SPIRONOLACTONE
     Route: 065
  10. METFORMIN [Concomitant]
     Active Substance: METFORMIN HYDROCHLORIDE
     Route: 065
  11. ZALDIAR [Concomitant]
     Active Substance: ACETAMINOPHEN\TRAMADOL HYDROCHLORIDE
     Dosage: 325/37,5MG AS NEEDED
     Route: 065

REACTIONS (5)
  - Condition aggravated [Unknown]
  - Metabolic acidosis [Unknown]
  - Acute kidney injury [Unknown]
  - Hyperkalaemia [Unknown]
  - Generalised oedema [Unknown]

NARRATIVE: CASE EVENT DATE: 20221213
